FAERS Safety Report 13492604 (Version 1)
Quarter: 2017Q2

REPORT INFORMATION
  Report Type: Report from Study
  Country: US (occurrence: US)
  Receive Date: 20170427
  Receipt Date: 20170427
  Transmission Date: 20170830
  Serious: Yes (Other)
  Sender: FDA-Public Use
  Company Number: US-GILEAD-2017-0266965

PATIENT
  Age: 29 Year
  Sex: Male

DRUGS (4)
  1. TETRACYCLINE [Concomitant]
     Active Substance: TETRACYCLINE
     Route: 065
  2. LEDIPASVIR/SOFOSBUVIR [Suspect]
     Active Substance: LEDIPASVIR\SOFOSBUVIR
     Dosage: 1 DF, QD
     Route: 048
     Dates: start: 20170407, end: 201704
  3. LEDIPASVIR/SOFOSBUVIR [Suspect]
     Active Substance: LEDIPASVIR\SOFOSBUVIR
     Dosage: 1 DF, QD
     Route: 048
     Dates: start: 20170424
  4. LEDIPASVIR/SOFOSBUVIR [Suspect]
     Active Substance: LEDIPASVIR\SOFOSBUVIR
     Indication: CHRONIC HEPATITIS C
     Dosage: 1 DF, QD
     Route: 048
     Dates: start: 20170404, end: 201704

REACTIONS (6)
  - Headache [Unknown]
  - Cough [Unknown]
  - Viral upper respiratory tract infection [Unknown]
  - Haematemesis [Recovering/Resolving]
  - Vomiting [Unknown]
  - Sleep disorder [Unknown]

NARRATIVE: CASE EVENT DATE: 201704
